FAERS Safety Report 7803392-6 (Version None)
Quarter: 2011Q4

REPORT INFORMATION
  Report Type: 
  Country: None (occurrence: None)
  Receive Date: 20111007
  Receipt Date: 20110930
  Transmission Date: 20120403
  Serious: Yes (Death)
  Sender: FDA-Public Use
  Company Number: JP-AMGEN-JPNCT2011051838

PATIENT
  Age: 77 Year
  Sex: Male
  Weight: 55 kg

DRUGS (16)
  1. PANITUMUMAB [Suspect]
     Dosage: 6 MG/KG, Q2WK
     Route: 041
     Dates: start: 20110202, end: 20110202
  2. CAPECITABINE [Suspect]
     Indication: COLORECTAL CANCER
     Dosage: UNK
     Route: 048
     Dates: start: 20100201, end: 20100701
  3. TERRA-CORTRIL [Concomitant]
     Dosage: UNK
     Route: 062
  4. PANITUMUMAB [Suspect]
     Indication: COLORECTAL CANCER
     Dosage: 6 MG/KG, Q2WK
     Route: 041
     Dates: start: 20100901, end: 20101013
  5. FLUOROURACIL [Suspect]
     Indication: COLORECTAL CANCER
     Route: 040
     Dates: start: 20100901, end: 20110202
  6. NERISONA [Concomitant]
     Dosage: UNK
     Route: 062
  7. OXALIPLATIN [Suspect]
     Indication: COLORECTAL CANCER
     Dosage: UNK
     Route: 041
     Dates: start: 20100201, end: 20100701
  8. MINOCYCLINE HCL [Concomitant]
     Dosage: UNK
     Route: 048
  9. IRINOTECAN HCL [Suspect]
     Indication: COLORECTAL CANCER
     Route: 041
     Dates: start: 20100901, end: 20110202
  10. EMEND [Concomitant]
     Dosage: UNK
     Route: 048
  11. PANITUMUMAB [Suspect]
     Dosage: 6 MG/KG, Q2WK
     Route: 041
     Dates: start: 20110105, end: 20110105
  12. LEVOLEUCOVORIN CALCIUM [Suspect]
     Indication: COLORECTAL CANCER
     Route: 041
     Dates: start: 20100901, end: 20110202
  13. FLUOROURACIL [Suspect]
     Route: 041
     Dates: start: 20100901, end: 20110202
  14. PANITUMUMAB [Suspect]
     Dosage: 6 MG/KG, Q2WK
     Route: 041
     Dates: start: 20101111, end: 20101111
  15. PANITUMUMAB [Suspect]
     Dosage: 6 MG/KG, Q2WK
     Route: 041
     Dates: start: 20101208, end: 20101208
  16. HIRUDOID [Concomitant]
     Dosage: UNK
     Route: 062

REACTIONS (8)
  - RASH MACULO-PAPULAR [None]
  - NAUSEA [None]
  - DYSGEUSIA [None]
  - DERMATITIS ACNEIFORM [None]
  - NEUROPATHY PERIPHERAL [None]
  - DEATH [None]
  - FATIGUE [None]
  - DECREASED APPETITE [None]
